FAERS Safety Report 8599503-8 (Version None)
Quarter: 2012Q3

REPORT INFORMATION
  Report Type: 
  Country: None (occurrence: None)
  Receive Date: 20120816
  Receipt Date: 20120531
  Transmission Date: 20120928
  Serious: No
  Sender: FDA-Public Use
  Company Number: US-ALLERGAN-1207636US

PATIENT
  Age: 82 Year
  Sex: Female

DRUGS (1)
  1. LASTACAFT [Suspect]
     Indication: SEASONAL ALLERGY
     Dosage: 2 GTT, QHS
     Route: 047
     Dates: start: 20120524

REACTIONS (3)
  - LACRIMATION INCREASED [None]
  - EYE PRURITUS [None]
  - EYE IRRITATION [None]
